FAERS Safety Report 9026435 (Version 1)
Quarter: 2013Q1

REPORT INFORMATION
  Report Type: Spontaneous
  Country: US (occurrence: US)
  Receive Date: 20130123
  Receipt Date: 20130123
  Transmission Date: 20140127
  Serious: Yes (Other)
  Sender: FDA-Public Use
  Company Number: US-JNJFOC-20130109168

PATIENT
  Sex: 0

DRUGS (4)
  1. TOPIRAMATE [Suspect]
     Indication: EPILEPSY
     Route: 048
  2. CARBAMAZEPINE [Concomitant]
     Indication: EPILEPSY
     Route: 065
  3. PHENYTOIN [Concomitant]
     Indication: EPILEPSY
     Route: 065
  4. ANTI-EPILEPTIC DRUG [Concomitant]
     Indication: EPILEPSY
     Route: 065

REACTIONS (5)
  - Cognitive disorder [Unknown]
  - Convulsion [Unknown]
  - Adverse event [Unknown]
  - Fatigue [Unknown]
  - Somnolence [Unknown]
